FAERS Safety Report 10297015 (Version 1)
Quarter: 2014Q3

REPORT INFORMATION
  Report Type: Spontaneous
  Country: US (occurrence: US)
  Receive Date: 20140711
  Receipt Date: 20140711
  Transmission Date: 20150326
  Serious: No
  Sender: FDA-Public Use
  Company Number: US-009507513-1407USA005369

PATIENT
  Sex: Female
  Weight: 58.96 kg

DRUGS (1)
  1. PRINIVIL [Suspect]
     Active Substance: LISINOPRIL
     Dosage: UNK UNK, Q4D
     Route: 048

REACTIONS (1)
  - Drug hypersensitivity [Unknown]
